FAERS Safety Report 16354425 (Version 1)
Quarter: 2019Q2

REPORT INFORMATION
  Report Type: Spontaneous
  Country: JP (occurrence: JP)
  Receive Date: 20190524
  Receipt Date: 20190524
  Transmission Date: 20190711
  Serious: Yes (Hospitalization, Other)
  Sender: FDA-Public Use
  Company Number: JP-PFIZER INC-2019127749

PATIENT
  Age: 73 Year
  Sex: Male
  Weight: 34 kg

DRUGS (2)
  1. DALACIN [Suspect]
     Active Substance: CLINDAMYCIN
     Dosage: 2 DF, 3X/DAY
     Route: 050
     Dates: start: 20190320
  2. AMOXICILLIN. [Concomitant]
     Active Substance: AMOXICILLIN
     Dosage: 2 DF, 3X/DAY
     Route: 050
     Dates: start: 20190320

REACTIONS (3)
  - Hypokalaemia [Unknown]
  - Pseudomembranous colitis [Unknown]
  - Haematochezia [Unknown]

NARRATIVE: CASE EVENT DATE: 2019
